FAERS Safety Report 5146640-6 (Version None)
Quarter: 2006Q4

REPORT INFORMATION
  Report Type: 
  Country: None (occurrence: None)
  Receive Date: 20061109
  Receipt Date: 20061106
  Transmission Date: 20070319
  Serious: Yes (Death, Hospitalization)
  Sender: FDA-Public Use
  Company Number: US-BRISTOL-MYERS SQUIBB COMPANY-13567755

PATIENT
  Age: 75 Year
  Sex: Male
  Weight: 87 kg

DRUGS (2)
  1. COUMADIN [Suspect]
     Indication: CARDIAC VALVE DISEASE
     Dosage: ALTERNATING DOSES 3.5 MG AND 4MG DAILY.
  2. PREDNISONE TAB [Concomitant]

REACTIONS (2)
  - PULMONARY FIBROSIS [None]
  - SPINAL FRACTURE [None]
